FAERS Safety Report 13428031 (Version 1)
Quarter: 2017Q2

REPORT INFORMATION
  Report Type: Report from Study
  Country: VE (occurrence: VE)
  Receive Date: 20170411
  Receipt Date: 20170411
  Transmission Date: 20170830
  Serious: Yes (Hospitalization)
  Sender: FDA-Public Use
  Company Number: VE-INCYTE CORPORATION-2017IN002616

PATIENT
  Sex: Male

DRUGS (1)
  1. JAKAVI [Suspect]
     Active Substance: RUXOLITINIB
     Indication: MYELOFIBROSIS
     Route: 065

REACTIONS (6)
  - Hypertension [Unknown]
  - Leukocytosis [Unknown]
  - Pulmonary embolism [Recovering/Resolving]
  - Atrial fibrillation [Unknown]
  - Splenomegaly [Unknown]
  - Pancytopenia [Unknown]
